FAERS Safety Report 12648987 (Version 1)
Quarter: 2016Q3

REPORT INFORMATION
  Report Type: Spontaneous
  Country: AU (occurrence: AU)
  Receive Date: 20160812
  Receipt Date: 20160812
  Transmission Date: 20161109
  Serious: Yes (Other)
  Sender: FDA-Public Use
  Company Number: AU-JNJFOC-20160803700

PATIENT

DRUGS (1)
  1. DARUNAVIR [Suspect]
     Active Substance: DARUNAVIR
     Indication: HIV INFECTION
     Route: 065

REACTIONS (16)
  - Pancreatitis [Unknown]
  - Nephrolithiasis [Unknown]
  - Fanconi syndrome [Unknown]
  - Angioedema [Unknown]
  - Neuropathy peripheral [Unknown]
  - Abdominal discomfort [Unknown]
  - Stevens-Johnson syndrome [Unknown]
  - Adverse drug reaction [Unknown]
  - Mental disorder [Unknown]
  - Renal impairment [Unknown]
  - Drug reaction with eosinophilia and systemic symptoms [Unknown]
  - Rash maculo-papular [Unknown]
  - Lipodystrophy acquired [Unknown]
  - Sleep disorder [Unknown]
  - Anaphylactic reaction [Unknown]
  - Liver disorder [Unknown]
